FAERS Safety Report 8921095 (Version 1)
Quarter: 2012Q4

REPORT INFORMATION
  Report Type: 
  Country: SE (occurrence: SE)
  Receive Date: 20121121
  Receipt Date: 20121121
  Transmission Date: 20130627
  Serious: Yes (Hospitalization)
  Sender: FDA-Public Use
  Company Number: SE-PFIZER INC-2012288305

PATIENT
  Age: 54 Year
  Sex: Female
  Weight: 72.6 kg

DRUGS (9)
  1. GENOTROPIN [Suspect]
     Indication: GROWTH HORMONE DEFICIENCY
     Dosage: 0.4 mg, 1x/day, 7 injections/week
     Route: 058
     Dates: start: 19980616
  2. MINIRIN [Concomitant]
     Indication: ADH DECREASED
     Dosage: UNK
     Dates: start: 19960701
  3. LEVAXIN [Concomitant]
     Indication: THYROID DISORDER
     Dosage: UNK
     Dates: start: 19961101
  4. LEVAXIN [Concomitant]
     Indication: PRIMARY HYPOTHYROIDISM
  5. ESTRACOMB [Concomitant]
     Indication: LUTEINIZING HORMONE DEFICIENCY
     Dosage: UNK
     Dates: start: 19970101
  6. ESTRACOMB [Concomitant]
     Indication: FOLLICLE-STIMULATING HORMONE DEFICIENCY
  7. ESTRACOMB [Concomitant]
     Indication: OVARIAN DISORDER
  8. ESTRACOMB [Concomitant]
     Indication: HYPOGONADISM
  9. CORTONE [Concomitant]
     Indication: ACTH DECREASED
     Dosage: UNK
     Dates: start: 19961101

REACTIONS (1)
  - Cardiac disorder [Unknown]
